FAERS Safety Report 10552238 (Version 1)
Quarter: 2014Q4

REPORT INFORMATION
  Report Type: Spontaneous
  Country: US (occurrence: None)
  Receive Date: 20141023
  Receipt Date: 20141023
  Transmission Date: 20150529
  Serious: No
  Sender: FDA-Public Use
  Company Number: AP356-01026-SPO-US

PATIENT
  Age: 65 Year
  Sex: Male
  Weight: 102 kg

DRUGS (2)
  1. BLOOD PRESSURE MEDICINE (ANTIHYPERTENSIVES) [Concomitant]
  2. BELVIQ [Suspect]
     Active Substance: LORCASERIN HYDROCHLORIDE
     Indication: WEIGHT DECREASED
     Route: 048
     Dates: start: 201405

REACTIONS (4)
  - Drug ineffective [None]
  - Constipation [None]
  - Dry mouth [None]
  - Rectal discharge [None]

NARRATIVE: CASE EVENT DATE: 201405
